FAERS Safety Report 10360402 (Version 1)
Quarter: 2014Q3

REPORT INFORMATION
  Report Type: Report from Study
  Country: US (occurrence: US)
  Receive Date: 20140804
  Receipt Date: 20140804
  Transmission Date: 20150326
  Serious: Yes (Other)
  Sender: FDA-Public Use
  Company Number: PHEH2014US015207

PATIENT
  Sex: Female

DRUGS (3)
  1. FEMARA [Suspect]
     Active Substance: LETROZOLE
     Indication: BREAST CANCER METASTATIC
     Dosage: UNK UKN, UNK
     Dates: start: 201210, end: 201405
  2. AFINITOR [Suspect]
     Active Substance: EVEROLIMUS
     Indication: BREAST CANCER METASTATIC
     Dosage: 5 MG, QD
     Route: 048
  3. ZOMETA [Suspect]
     Active Substance: ZOLEDRONIC ACID
     Dosage: UNK UKN, UNK

REACTIONS (4)
  - Pain [Unknown]
  - Malignant neoplasm progression [Unknown]
  - Breast cancer metastatic [Unknown]
  - Fungal skin infection [Unknown]
